FAERS Safety Report 9485077 (Version 1)
Quarter: 2013Q3

REPORT INFORMATION
  Report Type: Spontaneous
  Country: US (occurrence: US)
  Receive Date: 20130828
  Receipt Date: 20130828
  Transmission Date: 20140515
  Serious: No
  Sender: FDA-Public Use
  Company Number: US-ABBOTT-13P-163-1120096-00

PATIENT
  Age: 54 Year
  Sex: Male
  Weight: 70.37 kg

DRUGS (23)
  1. ANDROGEL [Suspect]
     Indication: BLOOD TESTOSTERONE DECREASED
     Dosage: PUMP TOTAL: 88G; 2 PUMPS DAILY
     Route: 061
     Dates: start: 201208, end: 201209
  2. ANDROGEL [Suspect]
     Dosage: 3 PUMPS DAILY
     Route: 061
     Dates: start: 201209, end: 201307
  3. ANDROGEL [Suspect]
     Dosage: 4 PUMPS DAILY
     Route: 061
     Dates: start: 201307
  4. ALLEGRA [Concomitant]
     Indication: HYPERSENSITIVITY
  5. AMBIEN CR [Concomitant]
     Indication: INSOMNIA
  6. ARGININE ALPHA KETOGUTERATE [Concomitant]
     Indication: NERVE INJURY
  7. ARGININE ALPHA KETOGUTERATE [Concomitant]
     Indication: CARDIOVASCULAR DISORDER
  8. ASTELIN [Concomitant]
     Indication: RHINITIS ALLERGIC
  9. CARNITINE [Concomitant]
     Indication: NERVE INJURY
  10. CIALIS [Concomitant]
     Indication: BLOOD PRESSURE
  11. CIALIS [Concomitant]
     Indication: ERECTILE DYSFUNCTION
  12. ZYRTEC [Concomitant]
     Indication: HYPERSENSITIVITY
  13. VITAMIN D3 [Concomitant]
     Indication: VITAMIN SUPPLEMENTATION
  14. VITAMIN E [Concomitant]
     Indication: VITAMIN SUPPLEMENTATION
  15. FLUTICASONE [Concomitant]
     Indication: HYPERSENSITIVITY
  16. INTELENCE [Concomitant]
     Indication: HIV INFECTION
  17. LIPOFLAVONOID PLUS B [Concomitant]
     Indication: TINNITUS
  18. MELATONIN [Concomitant]
     Indication: INSOMNIA
  19. MEPRON [Concomitant]
     Indication: PROPHYLAXIS
  20. MEPRON [Concomitant]
     Indication: PNEUMONIA
  21. PREZISTA [Concomitant]
     Indication: HIV INFECTION
  22. ISENTRESS [Concomitant]
     Indication: HIV INFECTION
  23. NORVIR [Concomitant]
     Indication: HIV INFECTION

REACTIONS (10)
  - Dermal absorption impaired [Not Recovered/Not Resolved]
  - Product formulation issue [Not Recovered/Not Resolved]
  - Blood testosterone abnormal [Not Recovered/Not Resolved]
  - Drug ineffective [Not Recovered/Not Resolved]
  - Asthenia [Not Recovered/Not Resolved]
  - Muscle fatigue [Recovered/Resolved]
  - Muscular weakness [Unknown]
  - Blood testosterone decreased [Recovered/Resolved]
  - Blood testosterone decreased [Not Recovered/Not Resolved]
  - Product contamination physical [Unknown]
